FAERS Safety Report 9357882 (Version 1)
Quarter: 2013Q2

REPORT INFORMATION
  Report Type: Spontaneous
  Country: US (occurrence: US)
  Receive Date: 20130620
  Receipt Date: 20130620
  Transmission Date: 20140414
  Serious: No
  Sender: FDA-Public Use
  Company Number: US-009507513-1306USA008634

PATIENT
  Sex: Male
  Weight: 40.82 kg

DRUGS (4)
  1. SINGULAIR [Suspect]
     Indication: ASTHMA
     Dosage: 5 MG, ONCE DAILY
     Route: 048
  2. MONTELUKAST SODIUM [Suspect]
     Indication: ASTHMA
     Dosage: UNKNOWN
  3. QVAR [Concomitant]
  4. XOPENEX [Concomitant]
     Dosage: INHALER AS NEEDED

REACTIONS (1)
  - Drug ineffective [Unknown]
